FAERS Safety Report 13841561 (Version 1)
Quarter: 2017Q3

REPORT INFORMATION
  Report Type: Not Available
  Country: IT (occurrence: IT)
  Receive Date: 20170807
  Receipt Date: 20170807
  Transmission Date: 20171127
  Serious: Yes (Other)
  Sender: FDA-Public Use
  Company Number: IT-ANIPHARMA-2017-IT-000062

PATIENT
  Age: 42 Year
  Sex: Female

DRUGS (4)
  1. SERTRALINE [Suspect]
     Active Substance: SERTRALINE HYDROCHLORIDE
     Dosage: 100MG/DAY
     Dates: start: 201508
  2. CLOZAPINE. [Suspect]
     Active Substance: CLOZAPINE
     Dosage: 400MG/DAY
     Route: 048
     Dates: start: 2007
  3. ZUCLOPENTIXOL [Concomitant]
     Active Substance: ZUCLOPENTHIXOL
  4. VALPROIC ACID (NON-SPECIFIC) [Suspect]
     Active Substance: VALPROIC ACID
     Dosage: 800MG/DAY
     Dates: start: 201508

REACTIONS (2)
  - Drug interaction [Unknown]
  - Serositis [Unknown]
